FAERS Safety Report 25914711 (Version 1)
Quarter: 2025Q4

REPORT INFORMATION
  Report Type: Spontaneous
  Country: EU (occurrence: EU)
  Receive Date: 20251013
  Receipt Date: 20251013
  Transmission Date: 20260118
  Serious: Yes (Other)
  Sender: FRESENIUS KABI
  Company Number: None

PATIENT
  Age: 66 Year
  Sex: Female

DRUGS (3)
  1. IRINOTECAN [Suspect]
     Active Substance: IRINOTECAN
     Indication: Pancreatic carcinoma metastatic
     Dosage: 249 MG EVERY 14 DAYS?FOA: CONCENTRATE FOR SOLUTION FOR INFUSION
     Route: 042
  2. OXALIPLATIN [Suspect]
     Active Substance: OXALIPLATIN
     Indication: Pancreatic carcinoma metastatic
     Dosage: 141 MG EVERY 14 DAYS?FOA: CONCENTRATE FOR SOLUTION FOR INFUSION?ROA: INTRAVENOUS (NOT OTHERWISE SPEC
  3. FLUOROURACIL [Concomitant]
     Active Substance: FLUOROURACIL
     Indication: Pancreatic carcinoma metastatic
     Dosage: 3984 MG EVERY 14 DAYS?FOA: SOLUTION FOR INJECTION/INFUSION?ROA: INTRAVENOUS (NOT OTHERWISE SPECIFIED

REACTIONS (3)
  - Neuropathy peripheral [Recovered/Resolved]
  - Asthenia [Recovered/Resolved]
  - Diarrhoea [Recovered/Resolved]

NARRATIVE: CASE EVENT DATE: 20250910
